FAERS Safety Report 17901252 (Version 2)
Quarter: 2020Q2

REPORT INFORMATION
  Report Type: Report from Study
  Country: GB (occurrence: GB)
  Receive Date: 20200616
  Receipt Date: 20200624
  Transmission Date: 20200714
  Serious: Yes (Death, Hospitalization)
  Sender: FDA-Public Use
  Company Number: GB-PFIZER INC-2020228824

PATIENT
  Age: 60 Year
  Sex: Male
  Weight: 76.9 kg

DRUGS (10)
  1. GLICLAZIDE [Concomitant]
     Active Substance: GLICLAZIDE
     Indication: DIABETES MELLITUS
     Dosage: 60 MG, 1X/DAY
     Route: 048
     Dates: start: 20200423
  2. TICAGRELOR. [Concomitant]
     Active Substance: TICAGRELOR
     Indication: MYOCARDIAL INFARCTION
     Dosage: 90 MG, 1X/DAY
     Route: 048
     Dates: start: 20200430, end: 20200523
  3. ASPIRIN [ACETYLSALICYLIC ACID] [Concomitant]
     Active Substance: ASPIRIN
     Indication: MYOCARDIAL INFARCTION
     Dosage: 75 MG
     Route: 048
     Dates: start: 20200430
  4. BISOPROLOL [Concomitant]
     Active Substance: BISOPROLOL
     Indication: HYPERTENSION
     Dosage: 3.75 MG, 1X/DAY
     Route: 048
     Dates: start: 20200427
  5. INSULIN GLARGINE [Concomitant]
     Active Substance: INSULIN GLARGINE
     Indication: DIABETES MELLITUS
     Dosage: 24 UNITS,1X/DAY
     Route: 058
  6. PALBOCICLIB [Suspect]
     Active Substance: PALBOCICLIB
     Dosage: 125 MG, DAILY
     Route: 048
     Dates: start: 20190708, end: 20200427
  7. DALTEPARIN [Concomitant]
     Active Substance: DALTEPARIN
     Indication: THROMBOSIS PROPHYLAXIS
     Dosage: 12500 UNITS, 1X/DAY
     Route: 058
     Dates: start: 2018
  8. TICLOPIDINE [Concomitant]
     Active Substance: TICLOPIDINE
     Indication: MYOCARDIAL INFARCTION
     Dosage: 400 MG, ALTERNATE DAY
     Route: 048
     Dates: start: 20200430, end: 20200523
  9. TEICOPLANIN [Concomitant]
     Active Substance: TEICOPLANIN
     Indication: SKIN ULCER
     Dosage: 400 MG, 1X/DAY
     Route: 042
     Dates: start: 20200323
  10. SITAGLIPTIN [Concomitant]
     Active Substance: SITAGLIPTIN
     Indication: DIABETES MELLITUS
     Dosage: 100 MG, 1X/DAY
     Route: 048
     Dates: start: 2004

REACTIONS (1)
  - Cerebrovascular accident [Fatal]

NARRATIVE: CASE EVENT DATE: 20200523
